FAERS Safety Report 13469888 (Version 1)
Quarter: 2017Q2

REPORT INFORMATION
  Report Type: Spontaneous
  Country: GB (occurrence: GB)
  Receive Date: 20170422
  Receipt Date: 20170422
  Transmission Date: 20170830
  Serious: Yes (Other)
  Sender: FDA-Public Use
  Company Number: PHFR2017GB002645

PATIENT
  Age: 51 Year
  Sex: Female
  Weight: 77.9 kg

DRUGS (5)
  1. OTRIVINE [Concomitant]
     Active Substance: XYLOMETAZOLINE HYDROCHLORIDE
     Indication: MIDDLE EAR EFFUSION
     Route: 065
  2. AVAMYS [Concomitant]
     Active Substance: FLUTICASONE FUROATE
     Indication: SINUS OPERATION
     Route: 065
  3. CLARITHROMYCIN. [Suspect]
     Active Substance: CLARITHROMYCIN
     Indication: LOWER RESPIRATORY TRACT INFECTION
     Dosage: 500 MG, BID
     Route: 048
     Dates: start: 20170325, end: 20170401
  4. CO-AMOXICLAV [Concomitant]
     Active Substance: AMOXICILLIN\CLAVULANIC ACID
     Indication: SINUSITIS
     Dosage: TWO COURSES.
     Route: 065
  5. LORATADINE. [Concomitant]
     Active Substance: LORATADINE
     Indication: MIDDLE EAR EFFUSION
     Route: 065

REACTIONS (14)
  - Abnormal dreams [Recovering/Resolving]
  - Dysgeusia [Unknown]
  - Postmenopausal haemorrhage [Recovering/Resolving]
  - Fatigue [Recovering/Resolving]
  - Parosmia [Recovering/Resolving]
  - Insomnia [Recovering/Resolving]
  - Malaise [Recovering/Resolving]
  - Dyspepsia [Recovering/Resolving]
  - Tinnitus [Unknown]
  - Heart rate increased [Recovering/Resolving]
  - Dizziness [Recovering/Resolving]
  - Chills [Recovering/Resolving]
  - Dry mouth [Recovering/Resolving]
  - Asthenia [Recovering/Resolving]

NARRATIVE: CASE EVENT DATE: 20170325
